FAERS Safety Report 5827896-0 (Version None)
Quarter: 2008Q3

REPORT INFORMATION
  Report Type: 
  Country: None (occurrence: None)
  Receive Date: 20080730
  Receipt Date: 20080718
  Transmission Date: 20090109
  Serious: Yes (Death)
  Sender: FDA-Public Use
  Company Number: JP-PFIZER INC-2008061892

PATIENT
  Age: 72 Year
  Sex: Female

DRUGS (5)
  1. REVATIO [Suspect]
     Indication: PULMONARY ARTERIAL HYPERTENSION
     Dosage: DAILY DOSE:40MG
     Route: 048
     Dates: start: 20080605, end: 20080715
  2. LASIX [Concomitant]
  3. ALDACTONE [Concomitant]
     Route: 048
  4. ERYTHROCIN [Concomitant]
  5. MUCOSAL [Concomitant]
     Route: 048

REACTIONS (1)
  - DEATH [None]
